FAERS Safety Report 9812066 (Version 1)
Quarter: 2014Q1

REPORT INFORMATION
  Report Type: Spontaneous
  Country: US (occurrence: US)
  Receive Date: 20140110
  Receipt Date: 20140110
  Transmission Date: 20141002
  Serious: Yes (Death)
  Sender: FDA-Public Use
  Company Number: US-ASTRAZENECA-2014SE01498

PATIENT
  Age: 26 Year
  Sex: Male

DRUGS (5)
  1. ACETAMINOPHEN [Suspect]
  2. PROPRANOLOL [Suspect]
  3. QUETIAPINE [Suspect]
  4. SALICYLATE [Suspect]
  5. FLUOXETINE [Suspect]

REACTIONS (1)
  - Toxicity to various agents [Fatal]
